FAERS Safety Report 10477304 (Version 1)
Quarter: 2014Q3

REPORT INFORMATION
  Report Type: Spontaneous
  Country: US (occurrence: None)
  Receive Date: 20140925
  Receipt Date: 20140925
  Transmission Date: 20150326
  Serious: Yes (Other)
  Sender: FDA-Public Use
  Company Number: None

PATIENT
  Age: 19 Month
  Sex: Male
  Weight: 11.34 kg

DRUGS (1)
  1. MONTELUKAST [Suspect]
     Active Substance: MONTELUKAST SODIUM
     Indication: DRUG THERAPY
     Dosage: BEDTIME
     Route: 048
     Dates: start: 20140906, end: 20140923

REACTIONS (5)
  - Aggression [None]
  - Psychiatric symptom [None]
  - Anxiety [None]
  - Depression [None]
  - Nightmare [None]

NARRATIVE: CASE EVENT DATE: 20140922
